FAERS Safety Report 9928143 (Version 1)
Quarter: 2014Q1

REPORT INFORMATION
  Report Type: Report from Study
  Country: US (occurrence: US)
  Receive Date: 20140227
  Receipt Date: 20140227
  Transmission Date: 20141002
  Serious: Yes (Other)
  Sender: FDA-Public Use
  Company Number: US-ROCHE-1330361

PATIENT
  Age: 71 Year
  Sex: Male

DRUGS (21)
  1. LUCENTIS [Suspect]
     Indication: AGE-RELATED MACULAR DEGENERATION
     Route: 050
     Dates: start: 20100202
  2. AVASTIN [Suspect]
     Indication: AGE-RELATED MACULAR DEGENERATION
     Dosage: DOUBLE DOSE
     Route: 050
     Dates: start: 20080327
  3. DIPHENHYDRAMINE HYDROCHLORIDE [Suspect]
     Indication: PRODUCT USED FOR UNKNOWN INDICATION
     Route: 065
  4. AMLODIPINE [Concomitant]
  5. ASPIRIN [Concomitant]
     Route: 065
  6. ENALAPRIL MALEATE [Concomitant]
  7. GEMFIBROZIL [Concomitant]
  8. HYDROCHLOROTHIAZIDE [Concomitant]
  9. MELATONIN [Concomitant]
     Indication: AGE-RELATED MACULAR DEGENERATION
  10. METFORMIN HYDROCHLORIDE [Concomitant]
     Route: 065
  11. OMEPRAZOLE [Concomitant]
  12. PRESERVISION AREDS [Concomitant]
  13. SELENIUM SULFIDE [Concomitant]
  14. SIMVASTATIN [Concomitant]
  15. TYLENOL ARTHRITIS [Concomitant]
  16. FISH OIL [Concomitant]
  17. VITAMIN A [Concomitant]
  18. WARFARIN SODIUM [Concomitant]
  19. XYLOCAINE [Concomitant]
     Route: 065
  20. BETADINE [Concomitant]
     Route: 047
  21. MYDRIACYL [Concomitant]
     Route: 065

REACTIONS (10)
  - Cataract nuclear [Unknown]
  - Retinal pigment epithelial tear [Unknown]
  - Visual acuity reduced [Unknown]
  - Off label use [Unknown]
  - Macular degeneration [Unknown]
  - Detachment of retinal pigment epithelium [Unknown]
  - Lacrimation decreased [Unknown]
  - Retinal haemorrhage [Unknown]
  - Vitreous detachment [Unknown]
  - Cutis laxa [Unknown]
